FAERS Safety Report 6996481-X (Version None)
Quarter: 2010Q3

REPORT INFORMATION
  Report Type: 
  Country: None (occurrence: None)
  Receive Date: 20100918
  Receipt Date: 20090406
  Transmission Date: 20110219
  Serious: No
  Sender: FDA-Public Use
  Company Number: US-WYE-H08845009

PATIENT
  Age: 56 Year
  Sex: Female

DRUGS (3)
  1. PREMPRO [Suspect]
     Indication: NIGHT SWEATS
     Route: 048
     Dates: start: 20090325, end: 20090328
  2. PREMPRO [Suspect]
     Indication: HOT FLUSH
  3. PREMARIN [Suspect]
     Indication: VULVOVAGINAL DRYNESS
     Route: 067
     Dates: start: 20090325, end: 20090328

REACTIONS (4)
  - ABDOMINAL PAIN [None]
  - APPLICATION SITE PAIN [None]
  - APPLICATION SITE PRURITUS [None]
  - VAGINAL HAEMORRHAGE [None]
